FAERS Safety Report 7877017-8 (Version None)
Quarter: 2011Q4

REPORT INFORMATION
  Report Type: 
  Country: None (occurrence: None)
  Receive Date: 20111031
  Receipt Date: 20110807
  Transmission Date: 20120403
  Serious: No
  Sender: FDA-Public Use
  Company Number: US-ABBOTT-11P-163-0845021-00

PATIENT
  Sex: Female
  Weight: 67.192 kg

DRUGS (7)
  1. CREON [Suspect]
     Indication: PANCREATITIS
     Dates: start: 20110524, end: 20110601
  2. HYDROCODONE BITARTRATE [Concomitant]
     Indication: MUSCULOSKELETAL PAIN
  3. XANAX [Concomitant]
     Indication: STRESS
  4. ALBUTEROL [Concomitant]
     Indication: SEASONAL ALLERGY
  5. PREMARIN [Concomitant]
     Indication: PRODUCT USED FOR UNKNOWN INDICATION
  6. HYDROCODONE BITARTRATE [Concomitant]
     Indication: NECK PAIN
  7. GABAPENTIN [Concomitant]
     Indication: NERVE INJURY
     Dates: start: 20110329

REACTIONS (10)
  - GASTROINTESTINAL DISORDER [None]
  - COUGH [None]
  - ABDOMINAL DISTENSION [None]
  - PYREXIA [None]
  - DYSPNOEA [None]
  - ORAL PAIN [None]
  - TOOTH LOSS [None]
  - WHEEZING [None]
  - OROPHARYNGEAL PAIN [None]
  - DIARRHOEA [None]
